FAERS Safety Report 8715660 (Version 2)
Quarter: 2013Q1

REPORT INFORMATION
  Report Type: Report from Study
  Country: IT (occurrence: IT)
  Receive Date: 20120809
  Receipt Date: 20130212
  Transmission Date: 20140127
  Serious: Yes (Death, Hospitalization)
  Sender: FDA-Public Use
  Company Number: IT-ROCHE-1097714

PATIENT
  Age: 53 Year
  Sex: Male
  Weight: 62 kg

DRUGS (6)
  1. VEMURAFENIB [Suspect]
     Indication: METASTATIC MALIGNANT MELANOMA
     Route: 048
     Dates: start: 20120620, end: 20120801
  2. VEMURAFENIB [Suspect]
     Route: 048
     Dates: end: 20121105
  3. KEPPRA [Concomitant]
     Indication: CONVULSION
     Route: 048
     Dates: end: 20121128
  4. ANTRA [Concomitant]
     Indication: GASTRITIS PROPHYLAXIS
     Route: 048
     Dates: end: 20121128
  5. CONCOR [Concomitant]
     Indication: HYPERTENSION
     Route: 048
     Dates: end: 20121128
  6. TARGIN [Concomitant]
     Indication: PAIN
     Route: 048
     Dates: end: 20121128

REACTIONS (4)
  - Anaemia [Not Recovered/Not Resolved]
  - Leukopenia [Not Recovered/Not Resolved]
  - Platelet count decreased [Not Recovered/Not Resolved]
  - Death [Fatal]
